FAERS Safety Report 17533654 (Version 2)
Quarter: 2020Q2

REPORT INFORMATION
  Report Type: Report from Study
  Country: CO (occurrence: CO)
  Receive Date: 20200312
  Receipt Date: 20200429
  Transmission Date: 20200713
  Serious: Yes (Hospitalization)
  Sender: FDA-Public Use
  Company Number: CO-ELI_LILLY_AND_COMPANY-CO202003004814

PATIENT
  Age: 80 Year
  Sex: Female

DRUGS (5)
  1. TERIPARATIDE [Suspect]
     Active Substance: TERIPARATIDE
     Indication: PAIN
  2. TERIPARATIDE [Suspect]
     Active Substance: TERIPARATIDE
     Indication: ARTHROPATHY
  3. TERIPARATIDE [Suspect]
     Active Substance: TERIPARATIDE
     Indication: RHEUMATIC DISORDER
  4. TERIPARATIDE [Suspect]
     Active Substance: TERIPARATIDE
     Indication: OSTEOPOROSIS
     Dosage: 20 UG, DAILY
     Route: 058
     Dates: start: 201905
  5. TERIPARATIDE [Suspect]
     Active Substance: TERIPARATIDE
     Indication: ARTHRITIS

REACTIONS (7)
  - Pyrexia [Not Recovered/Not Resolved]
  - Headache [Unknown]
  - Hypersensitivity [Not Recovered/Not Resolved]
  - Swelling [Not Recovered/Not Resolved]
  - Inflammation [Not Recovered/Not Resolved]
  - Pain in extremity [Not Recovered/Not Resolved]
  - Contusion [Not Recovered/Not Resolved]

NARRATIVE: CASE EVENT DATE: 201910
